FAERS Safety Report 6383577-9 (Version None)
Quarter: 2009Q4

REPORT INFORMATION
  Report Type: 
  Country: None (occurrence: None)
  Receive Date: 20091001
  Receipt Date: 20090925
  Transmission Date: 20100525
  Serious: Yes (Hospitalization, Other)
  Sender: FDA-Public Use
  Company Number: US-ELI_LILLY_AND_COMPANY-US200909006115

PATIENT
  Sex: Male

DRUGS (6)
  1. HUMALOG [Suspect]
     Dates: start: 20090801
  2. HUMALOG [Suspect]
     Dates: start: 20090801
  3. BYETTA [Concomitant]
     Dates: start: 20060101
  4. GLUCOPHAGE [Concomitant]
  5. AMARYL [Concomitant]
  6. JANUVIA [Concomitant]

REACTIONS (5)
  - BLOOD GLUCOSE FLUCTUATION [None]
  - DRUG INEFFECTIVE [None]
  - HOSPITALISATION [None]
  - LEUKAEMIA [None]
  - POOR QUALITY DRUG ADMINISTERED [None]
